FAERS Safety Report 10465568 (Version 2)
Quarter: 2014Q3

REPORT INFORMATION
  Report Type: Report from Study
  Country: US (occurrence: US)
  Receive Date: 20140919
  Receipt Date: 20140919
  Transmission Date: 20150326
  Serious: Yes (Other)
  Sender: FDA-Public Use
  Company Number: US-ALEXION-A201002309

PATIENT

DRUGS (1)
  1. SOLIRIS [Suspect]
     Active Substance: ECULIZUMAB
     Indication: PAROXYSMAL NOCTURNAL HAEMOGLOBINURIA

REACTIONS (8)
  - Haemoglobinuria [Unknown]
  - Activities of daily living impaired [Unknown]
  - Fatigue [Unknown]
  - Anaemia [Unknown]
  - Biopsy bone marrow [Unknown]
  - Haemoglobin decreased [Unknown]
  - Quality of life decreased [Unknown]
  - Dysphagia [Unknown]
